FAERS Safety Report 6422601-1 (Version None)
Quarter: 2009Q4

REPORT INFORMATION
  Report Type: 
  Country: None (occurrence: None)
  Receive Date: 20091102
  Receipt Date: 20091020
  Transmission Date: 20100525
  Serious: Yes (Hospitalization, Other)
  Sender: FDA-Public Use
  Company Number: US-BAYER-200927112NA

PATIENT
  Age: 52 Year
  Sex: Female

DRUGS (17)
  1. BETASERON [Suspect]
     Indication: RELAPSING-REMITTING MULTIPLE SCLEROSIS
     Dosage: TOTAL DAILY DOSE: 2 MIU
     Route: 058
     Dates: start: 20080205
  2. BETASERON [Suspect]
     Dosage: TOTAL DAILY DOSE: 8 MIU
     Route: 058
     Dates: start: 20080101, end: 20080611
  3. LIPITOR [Concomitant]
     Dosage: TOTAL DAILY DOSE: 40 MG
  4. TOPROL ER [Concomitant]
     Dosage: TOTAL DAILY DOSE: 15 MG
  5. AMBIEN CR [Concomitant]
     Dosage: TOTAL DAILY DOSE: 12.5 MG
  6. PROVIGIL [Concomitant]
     Indication: FATIGUE
     Dosage: TOTAL DAILY DOSE: 200 MG
  7. FOLIC ACID [Concomitant]
     Dosage: TOTAL DAILY DOSE: 3 MG
  8. PLAVIX [Concomitant]
     Dosage: TOTAL DAILY DOSE: 75 MG
  9. VITAMIN B-12 [Concomitant]
  10. ASPIRIN [Concomitant]
     Dosage: TOTAL DAILY DOSE: 81 MG
  11. FOSAMAX [Concomitant]
  12. LEXAPRO [Concomitant]
     Indication: DEPRESSION
     Dosage: TOTAL DAILY DOSE: 20 MG
  13. FIORICET [Concomitant]
     Indication: MIGRAINE
     Dosage: Q 4-6 HR
  14. VESICARE [Concomitant]
     Indication: URGE INCONTINENCE
     Dosage: TOTAL DAILY DOSE: 5 MG
  15. LISINOPRIL [Concomitant]
     Dosage: TOTAL DAILY DOSE: 2.5 MG
  16. LYRICA [Concomitant]
     Dosage: TOTAL DAILY DOSE: 150 MG
  17. ADVIL [Concomitant]
     Indication: PREMEDICATION

REACTIONS (17)
  - HEPATIC ENZYME INCREASED [None]
  - HYPOAESTHESIA [None]
  - HYPOAESTHESIA FACIAL [None]
  - INJECTION SITE ABSCESS STERILE [None]
  - INJECTION SITE CELLULITIS [None]
  - INJECTION SITE DISCOLOURATION [None]
  - INJECTION SITE INDURATION [None]
  - INJECTION SITE NECROSIS [None]
  - INJECTION SITE PAIN [None]
  - INJECTION SITE ULCER [None]
  - MULTIPLE SCLEROSIS [None]
  - MULTIPLE SCLEROSIS RELAPSE [None]
  - PAIN IN EXTREMITY [None]
  - PARAESTHESIA [None]
  - PLATELET COUNT DECREASED [None]
  - THYROID FUNCTION TEST ABNORMAL [None]
  - THYROXINE DECREASED [None]
